FAERS Safety Report 24746658 (Version 4)
Quarter: 2025Q1

REPORT INFORMATION
  Report Type: Spontaneous
  Country: ES (occurrence: ES)
  Receive Date: 20241218
  Receipt Date: 20250306
  Transmission Date: 20250409
  Serious: Yes (Other)
  Sender: AUROBINDO
  Company Number: ES-MLMSERVICE-20241127-PI269972-00232-1

PATIENT
  Age: 53 Year
  Sex: Male

DRUGS (6)
  1. MYCOPHENOLIC ACID [Suspect]
     Active Substance: MYCOPHENOLIC ACID
     Indication: Autoimmune hepatitis
     Dosage: 500 MILLIGRAM, TWO TIMES A DAY
     Route: 065
  2. PREDNISONE [Suspect]
     Active Substance: PREDNISONE
     Indication: Autoimmune hepatitis
     Route: 065
  3. URSODIOL [Concomitant]
     Active Substance: URSODIOL
     Indication: Autoimmune hepatitis
     Dosage: 450 MILLIGRAM, TWO TIMES A DAY
     Route: 065
  4. OMEPRAZOLE [Concomitant]
     Active Substance: OMEPRAZOLE
     Indication: Autoimmune hepatitis
     Route: 065
  5. CALCIUM\ERGOCALCIFEROL [Concomitant]
     Active Substance: CALCIUM\ERGOCALCIFEROL
     Indication: Autoimmune hepatitis
     Route: 065
  6. FLUVASTATIN [Concomitant]
     Active Substance: FLUVASTATIN SODIUM
     Indication: Autoimmune hepatitis
     Dosage: 20 MILLIGRAM, ONCE A DAY
     Route: 065

REACTIONS (6)
  - Trichophytosis [Recovered/Resolved]
  - Tinea cruris [Recovered/Resolved]
  - Tinea capitis [Recovered/Resolved]
  - Onychomycosis [Recovered/Resolved]
  - Dermatophytosis of nail [Recovering/Resolving]
  - Product use in unapproved indication [Unknown]
